FAERS Safety Report 19103998 (Version 1)
Quarter: 2021Q2

REPORT INFORMATION
  Report Type: Spontaneous
  Country: US (occurrence: US)
  Receive Date: 20210407
  Receipt Date: 20210407
  Transmission Date: 20210717
  Serious: No
  Sender: FDA-Public Use
  Company Number: US-ALKERMES INC.-ALK-2021-001590

PATIENT
  Age: 18 Year
  Sex: Male
  Weight: 85.71 kg

DRUGS (2)
  1. ARIPIPRAZOLE. [Concomitant]
     Active Substance: ARIPIPRAZOLE
     Indication: SCHIZOAFFECTIVE DISORDER BIPOLAR TYPE
     Dosage: 15 MILLIGRAM, QD
     Route: 048
     Dates: start: 202103
  2. ARISTADA [Suspect]
     Active Substance: ARIPIPRAZOLE LAUROXIL
     Indication: SCHIZOAFFECTIVE DISORDER BIPOLAR TYPE
     Dosage: 1064 MILLIGRAM, Q8WK
     Route: 030
     Dates: start: 201905

REACTIONS (8)
  - Hypersomnia [Not Recovered/Not Resolved]
  - Blood creatine increased [Unknown]
  - Personality disorder [Not Recovered/Not Resolved]
  - Syringe issue [Recovered/Resolved]
  - Off label use [Not Recovered/Not Resolved]
  - Irritability [Not Recovered/Not Resolved]
  - Product dose omission issue [Not Recovered/Not Resolved]
  - Agitation [Not Recovered/Not Resolved]

NARRATIVE: CASE EVENT DATE: 201905
